FAERS Safety Report 16023255 (Version 1)
Quarter: 2019Q1

REPORT INFORMATION
  Report Type: Spontaneous
  Country: ES (occurrence: ES)
  Receive Date: 20190301
  Receipt Date: 20190301
  Transmission Date: 20190418
  Serious: Yes (Life-Threatening, Hospitalization, Other)
  Sender: FDA-Public Use
  Company Number: ES-ASTRAZENECA-2019SE33102

PATIENT
  Age: 16 Year
  Sex: Male

DRUGS (10)
  1. PARACETAMOL [Suspect]
     Active Substance: ACETAMINOPHEN
     Route: 048
  2. TRAMADOL. [Suspect]
     Active Substance: TRAMADOL
     Route: 048
  3. METFORMIN [Suspect]
     Active Substance: METFORMIN HYDROCHLORIDE
     Route: 048
  4. IBUPROFEN. [Suspect]
     Active Substance: IBUPROFEN
     Route: 048
  5. PREDNISONE. [Suspect]
     Active Substance: PREDNISONE
     Route: 048
  6. OMEPRAZOLE. [Suspect]
     Active Substance: OMEPRAZOLE
     Route: 048
  7. VENLAFAXINE [Suspect]
     Active Substance: VENLAFAXINE HYDROCHLORIDE
     Route: 048
  8. DIAZEPAM. [Suspect]
     Active Substance: DIAZEPAM
     Route: 048
  9. VALSARTAN. [Suspect]
     Active Substance: VALSARTAN
     Route: 048
  10. ROBAXISAL [Suspect]
     Active Substance: ASPIRIN\METHOCARBAMOL
     Route: 048

REACTIONS (5)
  - Malaise [Unknown]
  - Poisoning deliberate [Recovering/Resolving]
  - Renal failure [Not Recovered/Not Resolved]
  - Suicide attempt [Unknown]
  - Lactic acidosis [Recovering/Resolving]
